FAERS Safety Report 16880663 (Version 1)
Quarter: 2019Q4

REPORT INFORMATION
  Report Type: Spontaneous
  Country: US (occurrence: US)
  Receive Date: 20191003
  Receipt Date: 20191003
  Transmission Date: 20200122
  Serious: No
  Sender: FDA-Public Use
  Company Number: US-JNJFOC-20191000726

PATIENT
  Sex: Female
  Weight: 65.83 kg

DRUGS (1)
  1. ORTHO TRI CYCLEN [Suspect]
     Active Substance: ETHINYL ESTRADIOL\NORGESTIMATE
     Indication: CONTRACEPTION
     Dosage: SHE TOOK THE GENERIC PRODUCT MAY BE 5 YEARS AGO
     Route: 048

REACTIONS (3)
  - Acne [Unknown]
  - Feeling abnormal [Unknown]
  - Mood swings [Unknown]
